FAERS Safety Report 10672234 (Version 2)
Quarter: 2014Q4

REPORT INFORMATION
  Report Type: Report from Study
  Country: US (occurrence: US)
  Receive Date: 20141223
  Receipt Date: 20141223
  Transmission Date: 20150529
  Serious: Yes (Hospitalization, Other)
  Sender: FDA-Public Use
  Company Number: US-ABBVIE-14P-163-1311573-00

PATIENT
  Age: 22 Year
  Sex: Female

DRUGS (2)
  1. PREDNISONE. [Concomitant]
     Active Substance: PREDNISONE
     Indication: PRODUCT USED FOR UNKNOWN INDICATION
     Dosage: THEN TAPER DOWN BY 10 MG PER DAY FOR 5 DAYS
  2. HUMIRA [Suspect]
     Active Substance: ADALIMUMAB
     Indication: CROHN^S DISEASE
     Route: 058
     Dates: start: 201210, end: 20141101

REACTIONS (9)
  - Palpitations [Recovering/Resolving]
  - Migraine [Recovered/Resolved]
  - Frequent bowel movements [Recovered/Resolved]
  - Stress [Unknown]
  - Migraine [Recovering/Resolving]
  - Sinusitis [Recovering/Resolving]
  - Tonsillitis [Recovering/Resolving]
  - Pyrexia [Unknown]
  - Abdominal pain [Recovered/Resolved]

NARRATIVE: CASE EVENT DATE: 201401
